FAERS Safety Report 14695372 (Version 1)
Quarter: 2018Q1

REPORT INFORMATION
  Report Type: Spontaneous
  Country: US (occurrence: US)
  Receive Date: 20180329
  Receipt Date: 20180329
  Transmission Date: 20180509
  Serious: Yes (Other)
  Sender: FDA-Public Use
  Company Number: US-MAYNE PHARMA-2017MYN002335

PATIENT

DRUGS (3)
  1. DOFETILIDE. [Suspect]
     Active Substance: DOFETILIDE
     Indication: SUPRAVENTRICULAR TACHYCARDIA
     Dosage: 500 MCG, BID
     Route: 048
     Dates: start: 201610
  2. LEVOTHYROXINE. [Concomitant]
     Active Substance: LEVOTHYROXINE
     Indication: PRODUCT USED FOR UNKNOWN INDICATION
     Dosage: 100 MCG, QAM
  3. VITAMIN B12 [Concomitant]
     Active Substance: CYANOCOBALAMIN
     Indication: PRODUCT USED FOR UNKNOWN INDICATION
     Dosage: UNK, QWEEK

REACTIONS (9)
  - Loss of consciousness [Unknown]
  - Asthenia [Unknown]
  - Depressed level of consciousness [Unknown]
  - Dizziness [Unknown]
  - Headache [Unknown]
  - Therapeutic response shortened [Unknown]
  - Dyspnoea [Unknown]
  - Treatment noncompliance [Unknown]
  - Chest pain [Unknown]

NARRATIVE: CASE EVENT DATE: 201708
